FAERS Safety Report 7645512-2 (Version None)
Quarter: 2011Q3

REPORT INFORMATION
  Report Type: 
  Country: None (occurrence: None)
  Receive Date: 20110729
  Receipt Date: 20110718
  Transmission Date: 20111222
  Serious: Yes (Congenital Anomaly)
  Sender: FDA-Public Use
  Company Number: ZA-UCBSA-037678

PATIENT
  Sex: Female
  Weight: 3.07 kg

DRUGS (3)
  1. ASACOL [Concomitant]
     Route: 048
     Dates: end: 20100901
  2. AZAPRESS [Concomitant]
     Route: 048
     Dates: end: 20100901
  3. CERTOLIZUMAB PEGOL [Suspect]
     Indication: CROHN'S DISEASE
     Route: 064
     Dates: end: 20100915

REACTIONS (2)
  - MATERNAL EXPOSURE DURING PREGNANCY [None]
  - VESICOURETERIC REFLUX [None]
